FAERS Safety Report 20692474 (Version 2)
Quarter: 2022Q2

REPORT INFORMATION
  Report Type: Spontaneous
  Country: CH (occurrence: CH)
  Receive Date: 20220409
  Receipt Date: 20220411
  Transmission Date: 20220721
  Serious: Yes (Other)
  Sender: FDA-Public Use
  Company Number: None

PATIENT
  Age: 39 Year
  Sex: Male

DRUGS (6)
  1. RISPERDAL [Suspect]
     Active Substance: RISPERIDONE
     Indication: Schizophrenia
     Route: 065
     Dates: start: 2011, end: 202201
  2. RISPERDAL [Suspect]
     Active Substance: RISPERIDONE
     Route: 065
     Dates: start: 202201, end: 20220208
  3. ARIPIPRAZOLE [Suspect]
     Active Substance: ARIPIPRAZOLE
     Indication: Psychotic disorder
     Dosage: LAST KNOWN DATE OF DRUG ADMINISTRATION: 16-FEB-2022; INCREASED PROGRESSIVELY
     Route: 065
     Dates: start: 20220203
  4. ARIPIPRAZOLE [Suspect]
     Active Substance: ARIPIPRAZOLE
     Route: 065
     Dates: start: 20220216
  5. VALIUM [Concomitant]
     Active Substance: DIAZEPAM
     Route: 065
  6. VITAMIN D3 [Concomitant]
     Active Substance: CHOLECALCIFEROL
     Route: 065

REACTIONS (3)
  - Rebound effect [Not Recovered/Not Resolved]
  - Erectile dysfunction [Unknown]
  - Weight increased [Unknown]

NARRATIVE: CASE EVENT DATE: 20110101
